FAERS Safety Report 23423493 (Version 2)
Quarter: 2024Q1

REPORT INFORMATION
  Report Type: Spontaneous
  Country: CH (occurrence: CH)
  Receive Date: 20240119
  Receipt Date: 20240201
  Transmission Date: 20240410
  Serious: Yes (Hospitalization, Other)
  Sender: FDA-Public Use
  Company Number: None

PATIENT
  Age: 56 Year
  Sex: Male
  Weight: 95 kg

DRUGS (37)
  1. LORAZEPAM [Suspect]
     Active Substance: LORAZEPAM
     Dosage: 1 MG, 2X/DAY
     Route: 048
     Dates: start: 20231209, end: 20231209
  2. LORAZEPAM [Suspect]
     Active Substance: LORAZEPAM
     Dosage: 0.5 MG, 2X/DAY
     Route: 048
     Dates: start: 20231211, end: 20231216
  3. LORAZEPAM [Suspect]
     Active Substance: LORAZEPAM
     Dosage: 1 MG, AS NEEDED
     Dates: start: 20231210, end: 20231210
  4. LORAZEPAM [Suspect]
     Active Substance: LORAZEPAM
     Dosage: 1 MG, AS NEEDED
     Dates: start: 20231211, end: 20231211
  5. LORAZEPAM [Suspect]
     Active Substance: LORAZEPAM
     Dosage: 0.5 MG, AS NEEDED
     Route: 048
     Dates: start: 20231211, end: 20231211
  6. LORAZEPAM [Suspect]
     Active Substance: LORAZEPAM
     Dosage: 0.5 MG, AS NEEDED
     Route: 048
     Dates: start: 20231220, end: 20231220
  7. NOVALGIN (METAMIZOLE SODIUM) [Suspect]
     Active Substance: METAMIZOLE SODIUM
     Indication: Back pain
     Dosage: 1000 MG
     Route: 048
     Dates: start: 20231208, end: 20231228
  8. METAMIZOLE [Suspect]
     Active Substance: METAMIZOLE
     Indication: Pain
     Dosage: 500 MG, AS NEEDED
     Route: 048
     Dates: start: 20231224, end: 20231227
  9. DAFALGAN [Suspect]
     Active Substance: ACETAMINOPHEN
     Indication: Back pain
     Dosage: 1 G, 4X/DAY
     Route: 048
     Dates: start: 20231208, end: 20231214
  10. DAFALGAN [Suspect]
     Active Substance: ACETAMINOPHEN
     Dosage: 1 G, 2X/DAY
     Route: 048
     Dates: start: 20231215, end: 20231219
  11. SEROQUEL [Suspect]
     Active Substance: QUETIAPINE FUMARATE
     Dosage: 25 MG, 2X/DAY
     Route: 048
     Dates: start: 20231216, end: 20231220
  12. SEROQUEL [Suspect]
     Active Substance: QUETIAPINE FUMARATE
     Dosage: 25 MG, DAILY
     Route: 048
     Dates: start: 20231220, end: 20231222
  13. SEROQUEL [Suspect]
     Active Substance: QUETIAPINE FUMARATE
     Dosage: 75 MG
     Route: 048
     Dates: start: 20231220, end: 20231222
  14. CIPROFLOXACIN [Suspect]
     Active Substance: CIPROFLOXACIN
     Dosage: 500 MG, DAILY
     Route: 048
     Dates: start: 20231220, end: 20231222
  15. NALOXONE HYDROCHLORIDE\OXYCODONE HYDROCHLORIDE [Concomitant]
     Active Substance: NALOXONE HYDROCHLORIDE\OXYCODONE HYDROCHLORIDE
     Indication: Back pain
     Dosage: UNK, 2X/DAY
     Route: 048
     Dates: start: 20231208
  16. ZYPREXA [Concomitant]
     Active Substance: OLANZAPINE
     Dosage: 5 MG, DAILY
     Route: 048
     Dates: start: 20231222, end: 20231226
  17. ZYPREXA [Concomitant]
     Active Substance: OLANZAPINE
     Dosage: 10 MG, DAILY
     Route: 048
     Dates: start: 20231227
  18. FRAGMIN [Concomitant]
     Active Substance: DALTEPARIN SODIUM
     Indication: Thrombosis prophylaxis
     Dosage: 5000 IU, DAILY
     Route: 058
     Dates: start: 20231209, end: 20231223
  19. FRAGMIN [Concomitant]
     Active Substance: DALTEPARIN SODIUM
     Dosage: 7500 IU, DAILY
     Route: 058
     Dates: start: 20231225
  20. DEXAMETHASONE [Concomitant]
     Active Substance: DEXAMETHASONE
     Dosage: 4 MG, 4X/DAY
     Route: 048
     Dates: start: 20231209, end: 20231210
  21. DEXAMETHASONE [Concomitant]
     Active Substance: DEXAMETHASONE
     Dosage: 8 MG, DAILY
     Route: 048
     Dates: start: 20231211, end: 20231221
  22. DEXAMETHASONE [Concomitant]
     Active Substance: DEXAMETHASONE
     Dosage: 4 MG, DAILY
     Route: 048
     Dates: start: 20231211, end: 20231221
  23. DEXAMETHASONE [Concomitant]
     Active Substance: DEXAMETHASONE
     Dosage: 8 MG, DAILY
     Route: 048
     Dates: start: 20231222, end: 20240104
  24. DEXAMETHASONE [Concomitant]
     Active Substance: DEXAMETHASONE
     Dosage: 4 MG, DAILY
     Route: 048
     Dates: start: 20240105
  25. SODIUM PICOSULFATE [Concomitant]
     Active Substance: SODIUM PICOSULFATE
     Indication: Constipation
     Dosage: 10 DROP, DAILY
     Route: 048
     Dates: start: 20231218, end: 20240106
  26. SODIUM PICOSULFATE [Concomitant]
     Active Substance: SODIUM PICOSULFATE
     Dosage: 15 DROP, DAILY
     Route: 048
     Dates: start: 20240107
  27. SODIUM PICOSULFATE [Concomitant]
     Active Substance: SODIUM PICOSULFATE
     Dosage: 20 DROP, AS NEEDED
     Route: 048
     Dates: start: 20231215, end: 20231215
  28. SODIUM PICOSULFATE [Concomitant]
     Active Substance: SODIUM PICOSULFATE
     Dosage: 20 DROP, AS NEEDED
     Route: 048
     Dates: start: 20231219, end: 20231219
  29. MOVICOL [Concomitant]
     Active Substance: POLYETHYLENE GLYCOL 3350\POTASSIUM CHLORIDE\SODIUM BICARBONATE\SODIUM CHLORIDE
     Indication: Constipation
     Dosage: 1 DF
     Route: 048
     Dates: start: 20231210, end: 20231220
  30. MOVICOL [Concomitant]
     Active Substance: POLYETHYLENE GLYCOL 3350\POTASSIUM CHLORIDE\SODIUM BICARBONATE\SODIUM CHLORIDE
     Dosage: UNK UNK, AS NEEDED
     Route: 048
     Dates: start: 20231214, end: 20231214
  31. MOVICOL [Concomitant]
     Active Substance: POLYETHYLENE GLYCOL 3350\POTASSIUM CHLORIDE\SODIUM BICARBONATE\SODIUM CHLORIDE
     Dosage: UNK UNK, AS NEEDED
     Route: 048
     Dates: start: 20231218, end: 20231218
  32. PANTOZOL [Concomitant]
     Active Substance: PANTOPRAZOLE SODIUM
     Dosage: 40 MG, DAILY
     Route: 048
     Dates: start: 20231221
  33. PRADIF T [Concomitant]
     Active Substance: TAMSULOSIN HYDROCHLORIDE
     Indication: Urinary hesitation
     Dosage: 400 UG, DAILY
     Route: 048
     Dates: start: 20231210
  34. METOCLOPRAMIDE HYDROCHLORIDE [Concomitant]
     Active Substance: METOCLOPRAMIDE HYDROCHLORIDE
     Indication: Nausea
     Dosage: 0.3 MG/DROP, AS NEEDED
     Dates: start: 20231220, end: 20231221
  35. CLYSSIE [Concomitant]
     Indication: Constipation
     Dosage: UNK, AS NEEDED
     Dates: start: 20231216, end: 20231216
  36. CLYSSIE [Concomitant]
     Dosage: UNK, AS NEEDED
     Dates: start: 20231219, end: 20231219
  37. OXYCODONE HYDROCHLORIDE [Concomitant]
     Active Substance: OXYCODONE HYDROCHLORIDE
     Indication: Pain
     Dosage: 5 MG, AS NEEDED
     Route: 048
     Dates: start: 20231210, end: 20231229

REACTIONS (5)
  - Pancytopenia [Recovering/Resolving]
  - Pulmonary embolism [Unknown]
  - Staphylococcal infection [Unknown]
  - Aerococcus urinae infection [Unknown]
  - Asymptomatic bacteriuria [Not Recovered/Not Resolved]

NARRATIVE: CASE EVENT DATE: 20231201
